FAERS Safety Report 5330061-7 (Version None)
Quarter: 2007Q2

REPORT INFORMATION
  Report Type: 
  Country: None (occurrence: None)
  Receive Date: 20070521
  Receipt Date: 20070508
  Transmission Date: 20071010
  Serious: Yes (Death, Hospitalization)
  Sender: FDA-Public Use
  Company Number: EG-ROCHE-496776

PATIENT
  Age: 55 Year
  Sex: Female

DRUGS (2)
  1. XELODA [Suspect]
     Indication: COLORECTAL CANCER
     Route: 065
     Dates: start: 20070305, end: 20070430
  2. OXALIPLATIN [Concomitant]
     Indication: COLORECTAL CANCER
     Dates: start: 20070305, end: 20070425

REACTIONS (3)
  - DIARRHOEA [None]
  - ILIAC ARTERY THROMBOSIS [None]
  - PALMAR-PLANTAR ERYTHRODYSAESTHESIA SYNDROME [None]
